FAERS Safety Report 9049695 (Version 1)
Quarter: 2013Q1

REPORT INFORMATION
  Report Type: Other
  Country: GB (occurrence: GB)
  Receive Date: 20130205
  Receipt Date: 20130205
  Transmission Date: 20140127
  Serious: Yes (Life-Threatening)
  Sender: FDA-Public Use
  Company Number: GB-WATSON-2013-01680

PATIENT
  Age: 58 Year
  Sex: Male
  Weight: 80 kg

DRUGS (7)
  1. PIOGLITAZONE (UNKNOWN) [Suspect]
     Indication: TYPE 2 DIABETES MELLITUS
     Dosage: 15MG
     Route: 048
     Dates: start: 20110903, end: 20120410
  2. PIOGLITAZONE (UNKNOWN) [Suspect]
     Dosage: 30MG
     Route: 048
     Dates: start: 20110411, end: 20120716
  3. PIOGLITAZONE (UNKNOWN) [Suspect]
     Dosage: 15MG
     Route: 048
     Dates: start: 20120717, end: 20120830
  4. GLIMEPIRIDE [Concomitant]
     Indication: TYPE 2 DIABETES MELLITUS
     Dosage: 1-2MG DAILY. ONGOING
     Route: 048
     Dates: start: 20100603
  5. VARDENAFIL [Concomitant]
     Indication: ERECTILE DYSFUNCTION
     Dosage: 20 MG, PRN
     Route: 048
     Dates: start: 20110419
  6. GABAPENTIN [Concomitant]
     Indication: DIABETIC NEUROPATHY
     Dosage: 350 MG, TID  ONGOING
     Route: 048
     Dates: start: 20110903
  7. DOXYCYCLINE [Concomitant]
     Indication: ROSACEA
     Dosage: 50 MG, DAILY  ONGOING
     Route: 048
     Dates: start: 20120305

REACTIONS (2)
  - Clear cell renal cell carcinoma [Not Recovered/Not Resolved]
  - Metastases to pancreas [Not Recovered/Not Resolved]
